FAERS Safety Report 23872974 (Version 1)
Quarter: 2024Q2

REPORT INFORMATION
  Report Type: Spontaneous
  Country: SI (occurrence: SI)
  Receive Date: 20240520
  Receipt Date: 20240520
  Transmission Date: 20240716
  Serious: Yes (Hospitalization, Other)
  Sender: FDA-Public Use
  Company Number: SI-MankindUS-000180

PATIENT
  Age: 90 Year
  Sex: Male

DRUGS (9)
  1. RANOLAZINE HYDROCHLORIDE [Suspect]
     Active Substance: RANOLAZINE HYDROCHLORIDE
     Indication: Angina pectoris
     Dosage: BID
  2. ASPIRIN [Concomitant]
     Active Substance: ASPIRIN
  3. PERINDOPRIL [Concomitant]
     Active Substance: PERINDOPRIL
  4. BISOPROLOL [Concomitant]
     Active Substance: BISOPROLOL\BISOPROLOL FUMARATE
  5. ATORVASTATIN [Concomitant]
     Active Substance: ATORVASTATIN
  6. PANTOPRAZOLE [Concomitant]
     Active Substance: PANTOPRAZOLE
  7. RIVASTIGMINE [Concomitant]
     Active Substance: RIVASTIGMINE
  8. QUETIAPINE [Concomitant]
     Active Substance: QUETIAPINE
  9. INSULIN NOS [Concomitant]
     Active Substance: INSULIN NOS

REACTIONS (2)
  - Hallucination, visual [Recovered/Resolved]
  - Aggression [Recovered/Resolved]
